FAERS Safety Report 9664561 (Version 1)
Quarter: 2013Q4

REPORT INFORMATION
  Report Type: Spontaneous
  Country: US (occurrence: US)
  Receive Date: 20131101
  Receipt Date: 20131101
  Transmission Date: 20140711
  Serious: Yes (Hospitalization)
  Sender: FDA-Public Use
  Company Number: US-CUBIST PHARMACEUTICALS, INC.-2013CBST001037

PATIENT
  Sex: 0

DRUGS (2)
  1. CUBICIN [Suspect]
     Indication: STAPHYLOCOCCAL INFECTION
     Dosage: 500 MG, QD, 10 ML
     Route: 042
     Dates: start: 20130925, end: 20131024
  2. RIFAMPICIN [Concomitant]
     Indication: STAPHYLOCOCCAL INFECTION
     Dosage: UNK UNK, UNK
     Route: 048
     Dates: start: 20130925, end: 20131017

REACTIONS (5)
  - Pyrexia [Not Recovered/Not Resolved]
  - Tremor [Not Recovered/Not Resolved]
  - Lethargy [Unknown]
  - Chills [Not Recovered/Not Resolved]
  - Antimicrobial susceptibility test resistant [Not Recovered/Not Resolved]
